FAERS Safety Report 4456062-9 (Version None)
Quarter: 2004Q3

REPORT INFORMATION
  Report Type: 
  Country: None (occurrence: None)
  Receive Date: 20040922
  Receipt Date: 20040913
  Transmission Date: 20050211
  Serious: Yes (Hospitalization)
  Sender: FDA-Public Use
  Company Number: US-BRISTOL-MYERS SQUIBB COMPANY-12699625

PATIENT
  Age: 58 Year
  Sex: Male

DRUGS (4)
  1. CARBOPLATIN [Suspect]
     Indication: CARCINOMA
     Dates: start: 20040831, end: 20040831
  2. TAXOL [Suspect]
     Indication: CARCINOMA
     Dates: start: 20040831, end: 20040831
  3. CELEBREX [Suspect]
     Indication: CARCINOMA
     Dates: end: 20040904
  4. RADIATION THERAPY [Suspect]
     Indication: CARCINOMA
     Dates: end: 20040903

REACTIONS (2)
  - DEHYDRATION [None]
  - NAUSEA [None]
